FAERS Safety Report 21399251 (Version 1)
Quarter: 2022Q4

REPORT INFORMATION
  Report Type: Spontaneous
  Country: NL (occurrence: NL)
  Receive Date: 20221001
  Receipt Date: 20221001
  Transmission Date: 20230113
  Serious: Yes (Other)
  Sender: FDA-Public Use
  Company Number: None

PATIENT
  Sex: Male
  Weight: 70 kg

DRUGS (1)
  1. SIMVASTATIN [Suspect]
     Active Substance: SIMVASTATIN
     Indication: Type IIa hyperlipidaemia
     Dosage: 20 MILLIGRAM DAILY; THERAPY START DATE AND END DATE: ASKU, SIMVASTATINE TABLET FO 20MG / BRAND NAME

REACTIONS (1)
  - Muscle rupture [Not Recovered/Not Resolved]
